FAERS Safety Report 5929940-9 (Version None)
Quarter: 2008Q4

REPORT INFORMATION
  Report Type: 
  Country: None (occurrence: None)
  Receive Date: 20081024
  Receipt Date: 20081014
  Transmission Date: 20090506
  Serious: Yes (Hospitalization)
  Sender: FDA-Public Use
  Company Number: US-PFIZER INC-2008072764

PATIENT
  Sex: Female
  Weight: 109 kg

DRUGS (4)
  1. CHANTIX [Suspect]
     Indication: SMOKING CESSATION THERAPY
     Route: 048
     Dates: start: 20080519, end: 20080701
  2. CYMBALTA [Concomitant]
     Indication: FIBROMYALGIA
  3. BUSPAR [Concomitant]
  4. LYRICA [Concomitant]

REACTIONS (6)
  - ABNORMAL DREAMS [None]
  - AGITATION [None]
  - ANXIETY [None]
  - BIPOLAR DISORDER [None]
  - DEPRESSED MOOD [None]
  - SUICIDE ATTEMPT [None]
